FAERS Safety Report 7766698-5 (Version None)
Quarter: 2011Q3

REPORT INFORMATION
  Report Type: 
  Country: None (occurrence: None)
  Receive Date: 20110922
  Receipt Date: 20110912
  Transmission Date: 20111222
  Serious: Yes (Hospitalization)
  Sender: FDA-Public Use
  Company Number: IT-JNJFOC-20110511850

PATIENT
  Sex: Male
  Weight: 48.4 kg

DRUGS (4)
  1. REMICADE [Suspect]
     Dosage: LAST REPORTED DOSE
     Route: 042
     Dates: start: 20100423
  2. HUMIRA [Concomitant]
     Dates: start: 20110517
  3. REMICADE [Suspect]
     Indication: CROHN'S DISEASE
     Dosage: STARTED
     Route: 042
     Dates: start: 20100111
  4. HUMIRA [Concomitant]
     Indication: CROHN'S DISEASE
     Dates: start: 20100722

REACTIONS (1)
  - ANAL ABSCESS [None]
